FAERS Safety Report 7051987-2 (Version None)
Quarter: 2010Q4

REPORT INFORMATION
  Report Type: 
  Country: None (occurrence: None)
  Receive Date: 20101019
  Receipt Date: 20101015
  Transmission Date: 20110411
  Serious: Yes (Hospitalization)
  Sender: FDA-Public Use
  Company Number: A0881296A

PATIENT
  Age: 84 Year
  Sex: Male

DRUGS (4)
  1. ADVAIR DISKUS 100/50 [Suspect]
     Indication: ASTHMA
     Dosage: 1PUFF TWICE PER DAY
     Route: 055
     Dates: start: 20100201, end: 20100902
  2. HIGH BLOOD PRESSURE PILL [Concomitant]
  3. WATER PILL [Concomitant]
  4. ASCORBIC ACID [Concomitant]

REACTIONS (7)
  - DYSGEUSIA [None]
  - FURUNCLE [None]
  - PAIN [None]
  - PRODUCT QUALITY ISSUE [None]
  - PRURITUS [None]
  - RASH [None]
  - URTICARIA [None]
